FAERS Safety Report 10420199 (Version 1)
Quarter: 2014Q3

REPORT INFORMATION
  Report Type: Report from Study
  Country: US (occurrence: None)
  Receive Date: 20140804
  Receipt Date: 20140804
  Transmission Date: 20150326
  Serious: Yes (Hospitalization)
  Sender: FDA-Public Use
  Company Number: 2012US006334

PATIENT
  Age: 56 Year
  Sex: Female
  Weight: 157 kg

DRUGS (9)
  1. ALBUTEROL /00139501/ (SALBUTAMOL) [Concomitant]
     Active Substance: ALBUTEROL
  2. SIMVASTATIN (SIMVASTATIN) [Concomitant]
     Active Substance: SIMVASTATIN
  3. OXYGEN (OXYGEN) [Suspect]
     Active Substance: OXYGEN
     Dosage: 2LPM?
  4. GLASSIA [Suspect]
     Active Substance: .ALPHA.1-PROTEINASE INHIBITOR HUMAN
     Indication: ALPHA-1 ANTI-TRYPSIN DEFICIENCY
     Dosage: 5 VIALS, WEEKLY, INTRAVENOUS
     Route: 042
     Dates: start: 201107
  5. SPIRIVA [Concomitant]
     Active Substance: TIOTROPIUM BROMIDE MONOHYDRATE
  6. LISINOPRIL (LISINOPRIL) [Concomitant]
     Active Substance: LISINOPRIL
  7. HYDROCHLORITHIAZIDE (HYDROCHLORITHIAZIDE) [Concomitant]
  8. PEPCID [Concomitant]
     Active Substance: FAMOTIDINE
  9. NORVASC [Concomitant]
     Active Substance: AMLODIPINE BESYLATE

REACTIONS (2)
  - Chronic obstructive pulmonary disease [None]
  - Bronchitis haemophilus [None]

NARRATIVE: CASE EVENT DATE: 20121219
